FAERS Safety Report 8097982-6 (Version None)
Quarter: 2012Q1

REPORT INFORMATION
  Report Type: 
  Country: None (occurrence: None)
  Receive Date: 20120128
  Receipt Date: 20110801
  Transmission Date: 20120608
  Serious: No
  Sender: FDA-Public Use
  Company Number: US-ABBOTT-11P-163-0843286-00

PATIENT
  Age: 65 Year
  Sex: Female

DRUGS (16)
  1. CO Q-10 [Concomitant]
     Indication: PRODUCT USED FOR UNKNOWN INDICATION
  2. RESCON [Concomitant]
     Indication: PARANASAL SINUS HYPERSECRETION
  3. MOBIC [Concomitant]
     Indication: PROSTATIC SPECIFIC ANTIGEN ABNORMAL
     Dosage: DAILY
  4. ZETIA [Concomitant]
     Indication: BLOOD CHOLESTEROL
  5. ROSEVESTEROL [Concomitant]
     Indication: PRODUCT USED FOR UNKNOWN INDICATION
     Dosage: 30 MG: 2 CAPSULES DAILY
  6. KRIEL [Concomitant]
     Indication: PRODUCT USED FOR UNKNOWN INDICATION
  7. MELOXICAM [Concomitant]
     Indication: PROSTATIC SPECIFIC ANTIGEN
  8. VITAMIN SUPER C [Concomitant]
     Indication: PRODUCT USED FOR UNKNOWN INDICATION
     Dosage: 22 POWDER 1500MG: 2 TEASPOONS DAILY
  9. HUMIRA [Suspect]
     Indication: PSORIATIC ARTHROPATHY
     Dates: start: 20100801
  10. ADVANCED VITAMIN D INCLUDES VITAMIN K [Concomitant]
     Indication: PRODUCT USED FOR UNKNOWN INDICATION
  11. BONIVA [Concomitant]
     Indication: OSTEOPOROSIS
  12. LISINOPRIL [Concomitant]
     Indication: HYPERTENSION
  13. MINOCYCLINE HCL [Concomitant]
     Indication: ILL-DEFINED DISORDER
     Dosage: DAILY
  14. LOVAZA [Concomitant]
     Indication: PRODUCT USED FOR UNKNOWN INDICATION
  15. KELP [Concomitant]
     Indication: SUPPLEMENTATION THERAPY
  16. MAGNESIUM AND ZINC [Concomitant]
     Indication: PRODUCT USED FOR UNKNOWN INDICATION

REACTIONS (6)
  - INJECTION SITE PAIN [None]
  - INJECTION SITE HAEMATOMA [None]
  - PSORIASIS [None]
  - INFLUENZA [None]
  - PYREXIA [None]
  - COUGH [None]
